FAERS Safety Report 6530212-2 (Version None)
Quarter: 2009Q4

REPORT INFORMATION
  Report Type: 
  Country: None (occurrence: None)
  Receive Date: 20091231
  Receipt Date: 20091217
  Transmission Date: 20100525
  Serious: Yes (Hospitalization)
  Sender: FDA-Public Use
  Company Number: 2009AL007829

PATIENT
  Age: 70 Year
  Sex: Male

DRUGS (8)
  1. TRAMADOL HCL [Suspect]
     Dosage: 100 MG; QID; PO
     Route: 048
     Dates: start: 20090916, end: 20091020
  2. PAREGORIC LIQUID USP (ALPHARMA) [Suspect]
     Dosage: 5 MG; PRN; PO
     Route: 048
     Dates: start: 20090326
  3. RAMIPRIL [Suspect]
     Dates: start: 20090326
  4. DALTEPARIN SODIUM [Concomitant]
  5. NULYTELY [Concomitant]
  6. ASPIRIN [Concomitant]
  7. BISOPROLOL FUMARATE [Concomitant]
  8. ATORVASTATIN [Concomitant]

REACTIONS (2)
  - ABDOMINAL DISTENSION [None]
  - CONSTIPATION [None]
